FAERS Safety Report 9934254 (Version 3)
Quarter: 2014Q1

REPORT INFORMATION
  Report Type: Spontaneous
  Country: TR (occurrence: TR)
  Receive Date: 20140228
  Receipt Date: 20140310
  Transmission Date: 20141002
  Serious: Yes (Other)
  Sender: FDA-Public Use
  Company Number: TR-NOVOPROD-400861

PATIENT
  Age: 46 Year
  Sex: Male
  Weight: 96 kg

DRUGS (6)
  1. LEVEMIR FLEXPEN [Suspect]
     Indication: TYPE 2 DIABETES MELLITUS
     Dosage: 15 U, QD
     Route: 065
     Dates: start: 20140205, end: 20140219
  2. NOVORAPID FLEXPEN [Suspect]
     Indication: TYPE 2 DIABETES MELLITUS
     Dosage: UNK
     Route: 065
     Dates: end: 20140219
  3. PLAVIX [Concomitant]
     Indication: CORONARY ARTERY DISEASE
     Dosage: UNK (1X1)
     Route: 065
  4. CORASPIN [Concomitant]
     Indication: CORONARY ARTERY DISEASE
     Dosage: 300 MG, QD (1 X1)
     Route: 065
  5. DAROB [Concomitant]
     Dosage: UNK (2X1)
     Route: 065
  6. DIAFORMIN [Concomitant]
     Dosage: 1000 MG, QD
     Route: 065

REACTIONS (2)
  - Arrhythmia [Recovered/Resolved]
  - Palpitations [Recovered/Resolved]
